FAERS Safety Report 9461610 (Version 1)
Quarter: 2013Q3

REPORT INFORMATION
  Report Type: Report from Study
  Country: DE (occurrence: DE)
  Receive Date: 20130816
  Receipt Date: 20130816
  Transmission Date: 20140515
  Serious: Yes (Other)
  Sender: FDA-Public Use
  Company Number: DE-ABBOTT-13P-062-1131673-00

PATIENT
  Age: 45 Year
  Sex: Female

DRUGS (3)
  1. HUMIRA [Suspect]
     Indication: PSORIASIS
     Route: 058
     Dates: start: 20120101, end: 20130608
  2. HUMIRA [Suspect]
     Dates: start: 20130806
  3. METHOTREXATE [Concomitant]
     Indication: PSORIASIS

REACTIONS (2)
  - Osteitis [Recovered/Resolved]
  - Purulence [Recovered/Resolved]
